FAERS Safety Report 7801540-5 (Version None)
Quarter: 2011Q4

REPORT INFORMATION
  Report Type: 
  Country: None (occurrence: None)
  Receive Date: 20111007
  Receipt Date: 20110930
  Transmission Date: 20120403
  Serious: Yes (Hospitalization, Disabling)
  Sender: FDA-Public Use
  Company Number: US-B.I. PHARMACEUTICALS,INC./RIDGEFIELD-2011-BP-18584BP

PATIENT
  Sex: Male

DRUGS (3)
  1. PRADAXA [Suspect]
     Indication: THROMBOSIS PROPHYLAXIS
  2. PRADAXA [Suspect]
  3. PRADAXA [Suspect]
     Indication: THROMBOSIS
     Dosage: 300 MG
     Route: 048
     Dates: start: 20110624, end: 20110722

REACTIONS (9)
  - VISUAL IMPAIRMENT [None]
  - BALANCE DISORDER [None]
  - VISION BLURRED [None]
  - PAIN [None]
  - CEREBROVASCULAR ACCIDENT [None]
  - CARDIAC ENZYMES INCREASED [None]
  - HEADACHE [None]
  - SPEECH DISORDER [None]
  - CHEST PAIN [None]
